FAERS Safety Report 4782445-3 (Version None)
Quarter: 2005Q3

REPORT INFORMATION
  Report Type: 
  Country: None (occurrence: None)
  Receive Date: 20050929
  Receipt Date: 20041102
  Transmission Date: 20060218
  Serious: No
  Sender: FDA-Public Use
  Company Number: 389563

PATIENT
  Age: 84 Year
  Sex: Male

DRUGS (12)
  1. COREG [Suspect]
     Dosage: 25MG TWICE PER DAY
     Route: 048
  2. PRILOSEC [Concomitant]
  3. BUMEX [Concomitant]
  4. ANAPRIL [Concomitant]
  5. POTASSIUM CHLORIDE [Concomitant]
  6. ALLOPURINOL [Concomitant]
  7. LIPITOR [Concomitant]
  8. PREDNISONE [Concomitant]
  9. TRIPLEX [Concomitant]
  10. GLUCOSAMINE [Concomitant]
  11. CHONDROITIN [Concomitant]
  12. MSM [Concomitant]

REACTIONS (3)
  - DIZZINESS [None]
  - DRY EYE [None]
  - VISION BLURRED [None]
